FAERS Safety Report 20067357 (Version 4)
Quarter: 2022Q2

REPORT INFORMATION
  Report Type: Report from Study
  Country: US (occurrence: US)
  Receive Date: 20211115
  Receipt Date: 20220505
  Transmission Date: 20220720
  Serious: Yes (Hospitalization, Other)
  Sender: FDA-Public Use
  Company Number: US-BIOVITRUM-2021US1033

PATIENT
  Age: 12 Year
  Sex: Female

DRUGS (3)
  1. KINERET [Suspect]
     Active Substance: ANAKINRA
     Indication: Colitis ulcerative
     Route: 058
     Dates: start: 20211008
  2. KINERET [Suspect]
     Active Substance: ANAKINRA
     Route: 058
     Dates: start: 20211008
  3. KINERET [Suspect]
     Active Substance: ANAKINRA
     Route: 058
     Dates: start: 20211008

REACTIONS (11)
  - Anaesthesia [Unknown]
  - Pancreatitis [Unknown]
  - Blood triglycerides increased [Unknown]
  - Serum ferritin increased [Unknown]
  - Haemoglobin increased [Unknown]
  - Blood urea increased [Unknown]
  - C-reactive protein decreased [Unknown]
  - Irritability [Unknown]
  - Gamma-glutamyltransferase increased [Unknown]
  - Injection site bruising [Recovered/Resolved]
  - Off label use [Not Recovered/Not Resolved]

NARRATIVE: CASE EVENT DATE: 20211008
